FAERS Safety Report 10866023 (Version 4)
Quarter: 2015Q2

REPORT INFORMATION
  Report Type: Spontaneous
  Country: JP (occurrence: JP)
  Receive Date: 20150225
  Receipt Date: 20150605
  Transmission Date: 20150821
  Serious: Yes (Other)
  Sender: FDA-Public Use
  Company Number: PHHY2015JP005328

PATIENT
  Age: 34 Year
  Sex: Female

DRUGS (9)
  1. NEORAL [Suspect]
     Active Substance: CYCLOSPORINE
     Dosage: UNK
  2. GRAN [Concomitant]
     Active Substance: FILGRASTIM
     Indication: NEUTROPENIA
     Dosage: 300 MG, ONCE OR TWICE WEEKLY
     Route: 058
     Dates: start: 20140521, end: 20140708
  3. BARACLUDE [Concomitant]
     Active Substance: ENTECAVIR
     Indication: HEPATITIS B
     Dosage: 0.5 MG, QD
     Route: 048
     Dates: start: 20140402
  4. FLOMOX//CEFCAPENE PIVOXIL HYDROCHLORIDE [Concomitant]
     Active Substance: CEFCAPENE PIVOXIL HYDROCHLORIDE HYDRATE
     Indication: URINARY TRACT INFECTION
     Dosage: 100 MG, TID
     Route: 048
     Dates: start: 20140419, end: 20140504
  5. FINIBAX [Concomitant]
     Active Substance: DORIPENEM MONOHYDRATE
     Indication: INFECTION
     Dosage: 0.5 G, TID
     Route: 041
     Dates: start: 20140521, end: 20140602
  6. FUNGUARD [Concomitant]
     Active Substance: MICAFUNGIN SODIUM
     Indication: INFECTION
     Dosage: 150 MG, QD
     Route: 041
     Dates: start: 20140521, end: 20140525
  7. NEORAL [Suspect]
     Active Substance: CYCLOSPORINE
     Indication: APLASTIC ANAEMIA
     Dosage: 100-275 MG, BID
     Route: 048
     Dates: start: 20140417
  8. FIRSTCIN [Concomitant]
     Active Substance: CEFOZOPRAN HYDROCHLORIDE
     Indication: PHARYNGITIS
     Dosage: 2 G, BID
     Route: 041
     Dates: start: 20140517, end: 20140521
  9. MUCOSTA [Concomitant]
     Active Substance: REBAMIPIDE
     Indication: DYSPEPSIA
     Dosage: 100 MG, TID
     Route: 048
     Dates: start: 20140515

REACTIONS (7)
  - Aplastic anaemia [Unknown]
  - Premature labour [Unknown]
  - Pharyngitis [Recovered/Resolved]
  - Post procedural infection [Recovered/Resolved]
  - Maternal exposure during pregnancy [Unknown]
  - Cystitis [Recovered/Resolved]
  - Febrile neutropenia [Recovered/Resolved]

NARRATIVE: CASE EVENT DATE: 20140517
